FAERS Safety Report 8590776-4 (Version None)
Quarter: 2012Q3

REPORT INFORMATION
  Report Type: 
  Country: None (occurrence: None)
  Receive Date: 20120813
  Receipt Date: 20120507
  Transmission Date: 20120928
  Serious: No
  Sender: FDA-Public Use
  Company Number: US-009507513-2012SP034412

PATIENT

DRUGS (1)
  1. CORICIDIN [Suspect]
     Dosage: UNK UNK, UNKNOWN
     Route: 048

REACTIONS (2)
  - DRUG INEFFECTIVE [None]
  - CONDITION AGGRAVATED [None]
